FAERS Safety Report 8923197 (Version 3)
Quarter: 2013Q3

REPORT INFORMATION
  Report Type: Spontaneous
  Country: JP (occurrence: JP)
  Receive Date: 20121124
  Receipt Date: 20130815
  Transmission Date: 20140515
  Serious: Yes (Other)
  Sender: FDA-Public Use
  Company Number: PHHY2011JP117462

PATIENT
  Age: 79 Year
  Sex: Male
  Weight: 69 kg

DRUGS (3)
  1. ZOMETA [Suspect]
     Indication: METASTASES TO BONE
     Dosage: 4 MG, PER ADMINISTRATION
     Route: 041
     Dates: start: 20100219, end: 20120423
  2. ZOLADEX [Concomitant]
     Indication: PROSTATE CANCER
     Dosage: 10.8 MG, UNK
     Route: 058
     Dates: start: 20100219
  3. ODYNE [Concomitant]
     Indication: PROSTATE CANCER
     Dosage: 375 MG, UNK
     Route: 048
     Dates: start: 20100219

REACTIONS (10)
  - Osteonecrosis of jaw [Not Recovered/Not Resolved]
  - Pain in jaw [Unknown]
  - Gingival erythema [Unknown]
  - Gingival swelling [Unknown]
  - Gingivitis [Unknown]
  - Tenderness [Unknown]
  - Oral disorder [Unknown]
  - Exposed bone in jaw [Unknown]
  - Soft tissue infection [Unknown]
  - Sinusitis [Unknown]
